FAERS Safety Report 25092386 (Version 1)
Quarter: 2025Q1

REPORT INFORMATION
  Report Type: Spontaneous
  Country: JP (occurrence: JP)
  Receive Date: 20250319
  Receipt Date: 20250319
  Transmission Date: 20250409
  Serious: Yes (Other)
  Sender: VIIV
  Company Number: JP-ViiV Healthcare-95315

PATIENT

DRUGS (2)
  1. VOCABRIA [Suspect]
     Active Substance: CABOTEGRAVIR SODIUM
  2. RILPIVIRINE [Suspect]
     Active Substance: RILPIVIRINE

REACTIONS (1)
  - Motor neurone disease [Unknown]
